FAERS Safety Report 19253234 (Version 1)
Quarter: 2021Q2

REPORT INFORMATION
  Report Type: Report from Study
  Country: FR (occurrence: FR)
  Receive Date: 20210513
  Receipt Date: 20210513
  Transmission Date: 20210717
  Serious: Yes (Hospitalization, Other)
  Sender: FDA-Public Use
  Company Number: FR-BRISTOL-MYERS SQUIBB COMPANY-BMS-2021-044818

PATIENT
  Age: 46 Year
  Sex: Male

DRUGS (2)
  1. NIVOLUMAB [Suspect]
     Active Substance: NIVOLUMAB
     Indication: RENAL CANCER METASTATIC
     Dosage: EVERY 21 DAYS
     Route: 042
     Dates: start: 20210319, end: 20210409
  2. IPILIMUMAB [Suspect]
     Active Substance: IPILIMUMAB
     Indication: RENAL CANCER METASTATIC
     Dosage: EVERY 21 DAYS
     Route: 042
     Dates: start: 20210319, end: 20210409

REACTIONS (5)
  - Hepatic cytolysis [Unknown]
  - Dyspnoea [Recovering/Resolving]
  - Pyrexia [Recovering/Resolving]
  - Malignant neoplasm progression [Unknown]
  - Liver disorder [Recovering/Resolving]

NARRATIVE: CASE EVENT DATE: 20210430
